FAERS Safety Report 23122702 (Version 2)
Quarter: 2024Q4

REPORT INFORMATION
  Report Type: Spontaneous
  Country: US (occurrence: US)
  Receive Date: 20231030
  Receipt Date: 20241106
  Transmission Date: 20250114
  Serious: Yes (Other)
  Sender: UCB
  Company Number: US-UCBSA-2023016149

PATIENT
  Age: 48 Year
  Sex: Male

DRUGS (1)
  1. VIMPAT [Suspect]
     Active Substance: LACOSAMIDE
     Indication: Epilepsy
     Dosage: UNK
     Dates: start: 2016, end: 20230323

REACTIONS (2)
  - Seizure [Not Recovered/Not Resolved]
  - Insurance issue [Unknown]
